FAERS Safety Report 5297549-9 (Version None)
Quarter: 2007Q2

REPORT INFORMATION
  Report Type: 
  Country: None (occurrence: None)
  Receive Date: 20070416
  Receipt Date: 20070403
  Transmission Date: 20071010
  Serious: Yes (Hospitalization)
  Sender: FDA-Public Use
  Company Number: PHMT2007CA00538

PATIENT
  Sex: Male

DRUGS (1)
  1. EXELON [Suspect]
     Route: 048

REACTIONS (2)
  - DYSPHAGIA [None]
  - SURGERY [None]
